FAERS Safety Report 8838692 (Version 8)
Quarter: 2014Q2

REPORT INFORMATION
  Report Type: Spontaneous
  Country: US (occurrence: US)
  Receive Date: 20121012
  Receipt Date: 20140429
  Transmission Date: 20141212
  Serious: Yes (Hospitalization, Disabling, Other)
  Sender: FDA-Public Use
  Company Number: US-009507513-1210USA003212

PATIENT
  Sex: Female
  Weight: 72.11 kg

DRUGS (11)
  1. FOSAMAX [Suspect]
     Indication: OSTEOPENIA
     Dosage: 70 MG, QD
     Route: 048
     Dates: start: 2002, end: 200603
  2. FOSAMAX [Suspect]
     Indication: BONE LOSS
     Dosage: DAILY
     Route: 048
     Dates: start: 19960722
  3. FOSAMAX [Suspect]
     Dosage: 70 MG, WEEKLY
     Route: 048
  4. FOSAMAX PLUS D [Suspect]
     Indication: OSTEOPENIA
     Dosage: 70 MG/2800 IU WEEKLY
     Route: 048
     Dates: start: 200603, end: 201110
  5. ZOLOFT [Concomitant]
     Indication: ANXIETY
     Dosage: 150 MG, DAILY
     Route: 048
     Dates: start: 1985
  6. AMITRIPTYLINE HYDROCHLORIDE [Concomitant]
     Indication: RESTLESS LEGS SYNDROME
     Dosage: 10 MG, HS
     Route: 048
     Dates: start: 19960122
  7. COUMADIN [Concomitant]
     Indication: THROMBOSIS PROPHYLAXIS
     Dosage: 4-9 MG, DAILY
     Dates: start: 199512
  8. DULCOLAX [Concomitant]
  9. MIRAPEX [Concomitant]
     Indication: RESTLESS LEGS SYNDROME
     Dosage: 0.25-1 MG, PRN HS
  10. CLONAZEPAM [Concomitant]
     Indication: RESTLESS LEGS SYNDROME
  11. KLONOPIN [Concomitant]
     Indication: RESTLESS LEGS SYNDROME

REACTIONS (86)
  - Femur fracture [Unknown]
  - Intramedullary rod insertion [Unknown]
  - Haematocrit decreased [Recovering/Resolving]
  - Intramedullary rod insertion [Unknown]
  - Haemorrhagic anaemia [Recovering/Resolving]
  - Internal fixation of fracture [Unknown]
  - Spinal nerve stimulator implantation [Unknown]
  - Knee arthroplasty [Unknown]
  - Fracture delayed union [Unknown]
  - Intervertebral disc operation [Unknown]
  - Spinal operation [Unknown]
  - Spinal laminectomy [Unknown]
  - Removal of internal fixation [Unknown]
  - Spinal nerve stimulator implantation [Unknown]
  - Removal of internal fixation [Unknown]
  - Deep vein thrombosis postoperative [Unknown]
  - Pulmonary embolism [Unknown]
  - Blood creatine phosphokinase increased [Recovered/Resolved]
  - Hip fracture [Unknown]
  - Femur fracture [Unknown]
  - Inappropriate schedule of drug administration [Unknown]
  - Medical device removal [Unknown]
  - Pain [Unknown]
  - Nasopharyngitis [Unknown]
  - Infection [Unknown]
  - Osteoarthritis [Not Recovered/Not Resolved]
  - Spinal osteoarthritis [Not Recovered/Not Resolved]
  - Adverse event [Unknown]
  - Endovenous ablation [Unknown]
  - Inflammation [Unknown]
  - Osteosclerosis [Unknown]
  - Rib fracture [Unknown]
  - Fall [Unknown]
  - Spinal osteoarthritis [Unknown]
  - Skin abrasion [Unknown]
  - Intervertebral disc disorder [Unknown]
  - Irritable bowel syndrome [Unknown]
  - Osteoporosis [Unknown]
  - Temporomandibular joint syndrome [Unknown]
  - Myofascial pain syndrome [Unknown]
  - Metabolic syndrome [Unknown]
  - Knee operation [Unknown]
  - Nasal operation [Unknown]
  - Adenotonsillectomy [Unknown]
  - Drug effect prolonged [Unknown]
  - Pelvic floor muscle weakness [Unknown]
  - Bladder prolapse [Unknown]
  - Nerve compression [Unknown]
  - Hand fracture [Unknown]
  - Depression [Unknown]
  - Lumbar radiculopathy [Unknown]
  - Adverse event [Unknown]
  - Fracture delayed union [Unknown]
  - Bone cyst [Unknown]
  - Biopsy [Unknown]
  - Endovenous ablation [Unknown]
  - Peripheral venous disease [Unknown]
  - Lymphorrhoea [Unknown]
  - Tinnitus [Unknown]
  - Blood glucose increased [Unknown]
  - Leukocytosis [Unknown]
  - Fibromyalgia [Unknown]
  - Carpal tunnel syndrome [Unknown]
  - Hyperlipidaemia [Unknown]
  - Sleep apnoea syndrome [Unknown]
  - Urinary tract infection [Recovered/Resolved]
  - Hypertension [Unknown]
  - Discomfort [Unknown]
  - Intervertebral disc degeneration [Unknown]
  - Post procedural constipation [Unknown]
  - Fractured coccyx [Unknown]
  - Intervertebral disc protrusion [Unknown]
  - Contusion [Unknown]
  - Joint injury [Unknown]
  - Breast disorder female [Unknown]
  - Bursitis [Unknown]
  - Vertebroplasty [Unknown]
  - Blister [Recovering/Resolving]
  - Electrocardiogram ST segment abnormal [Unknown]
  - Electrocardiogram T wave amplitude decreased [Unknown]
  - Chest pain [Unknown]
  - Neck pain [Unknown]
  - Constipation [Not Recovered/Not Resolved]
  - Back pain [Not Recovered/Not Resolved]
  - Gastrooesophageal reflux disease [Unknown]
  - Pruritus [Unknown]
